FAERS Safety Report 6829589-X (Version None)
Quarter: 2010Q3

REPORT INFORMATION
  Report Type: 
  Country: None (occurrence: None)
  Receive Date: 20100709
  Receipt Date: 20070419
  Transmission Date: 20110219
  Serious: No
  Sender: FDA-Public Use
  Company Number: US-PFIZER INC-2007010967

PATIENT
  Sex: Male
  Weight: 102.06 kg

DRUGS (1)
  1. CHANTIX [Suspect]
     Indication: SMOKING CESSATION THERAPY
     Dates: start: 20061123

REACTIONS (6)
  - ANXIETY [None]
  - DISCOMFORT [None]
  - INSOMNIA [None]
  - IRRITABILITY [None]
  - MALAISE [None]
  - WEIGHT INCREASED [None]
